FAERS Safety Report 9280499 (Version 1)
Quarter: 2013Q2

REPORT INFORMATION
  Report Type: Spontaneous
  Country: US (occurrence: None)
  Receive Date: 20130507
  Receipt Date: 20130507
  Transmission Date: 20140414
  Serious: Yes (Hospitalization)
  Sender: FDA-Public Use
  Company Number: None

PATIENT
  Age: 41 Year
  Sex: Female
  Weight: 70.9 kg

DRUGS (1)
  1. HYALURONIC ACID [Suspect]
     Indication: SKIN COSMETIC PROCEDURE

REACTIONS (3)
  - Cellulitis [None]
  - Subcutaneous abscess [None]
  - Bacteraemia [None]
